FAERS Safety Report 9359154 (Version 1)
Quarter: 2013Q2

REPORT INFORMATION
  Report Type: Spontaneous
  Country: FR (occurrence: None)
  Receive Date: 20130617
  Receipt Date: 20130617
  Transmission Date: 20140414
  Serious: Yes (Hospitalization)
  Sender: FDA-Public Use
  Company Number: 7215926

PATIENT
  Age: 43 Year
  Sex: Female

DRUGS (3)
  1. LEVOTHYROX [Suspect]
     Indication: HYPOTHYROIDISM
     Dosage: FROM LONG TERM
     Route: 048
  2. TAXOTERE [Suspect]
     Indication: BREAST CANCER
     Dosage: 180MG PER CYCLE
     Route: 042
     Dates: start: 20100820
  3. SEROPLEX [Suspect]
     Indication: PRODUCT USED FOR UNKNOWN INDICATION
     Dosage: FROM LONG TERM
     Route: 048

REACTIONS (3)
  - Musculoskeletal pain [None]
  - Pyrexia [None]
  - Aplasia [None]
